FAERS Safety Report 5264704-3 (Version None)
Quarter: 2007Q1

REPORT INFORMATION
  Report Type: 
  Country: None (occurrence: None)
  Receive Date: 20070314
  Receipt Date: 20070305
  Transmission Date: 20070707
  Serious: Yes (Death)
  Sender: FDA-Public Use
  Company Number: PHBS2007JP03330

PATIENT
  Age: 45 Year
  Sex: Female

DRUGS (5)
  1. CYCLOSPORINE [Suspect]
     Indication: ALLOGENIC BONE MARROW TRANSPLANTATION THERAPY
     Dosage: UNK, UNK
     Route: 065
  2. VORICONAZOLE [Concomitant]
     Indication: BRONCHOPULMONARY ASPERGILLOSIS
     Route: 065
  3. MICAFUNGIN SODIUM [Concomitant]
     Indication: CANDIDIASIS
     Route: 065
  4. PREDNISOLONE [Concomitant]
     Indication: ALLOGENIC BONE MARROW TRANSPLANTATION THERAPY
     Route: 065
  5. TACROLIMUS [Concomitant]
     Indication: ALLOGENIC BONE MARROW TRANSPLANTATION THERAPY
     Dosage: 1 MG/KG/DAY

REACTIONS (7)
  - CARDIAC VALVE VEGETATION [None]
  - CEREBRAL HAEMORRHAGE [None]
  - DISEASE PROGRESSION [None]
  - ENDOCARDITIS [None]
  - LIVER ABSCESS [None]
  - RENAL ABSCESS [None]
  - SYSTEMIC CANDIDA [None]
